FAERS Safety Report 10779914 (Version 2)
Quarter: 2015Q2

REPORT INFORMATION
  Report Type: Spontaneous
  Country: US (occurrence: US)
  Receive Date: 20150210
  Receipt Date: 20150408
  Transmission Date: 20150821
  Serious: Yes (Hospitalization)
  Sender: FDA-Public Use
  Company Number: US-BAYER-2015-018504

PATIENT
  Age: 34 Year
  Sex: Female
  Weight: 90.7 kg

DRUGS (2)
  1. MIRENA [Suspect]
     Active Substance: LEVONORGESTREL
     Indication: CONTRACEPTION
     Dosage: 20 MCG/24HR, CONT
     Route: 015
     Dates: start: 20080724, end: 20130807
  2. FISH OIL [Concomitant]
     Active Substance: FISH OIL

REACTIONS (11)
  - Device breakage [None]
  - Pelvic pain [None]
  - Uterine perforation [None]
  - Scar [None]
  - Depression [None]
  - Emotional distress [None]
  - Abdominal pain lower [None]
  - Anxiety [None]
  - Injury [None]
  - Device issue [None]
  - Flank pain [None]

NARRATIVE: CASE EVENT DATE: 2008
